FAERS Safety Report 6892167-0 (Version None)
Quarter: 2010Q3

REPORT INFORMATION
  Report Type: 
  Country: None (occurrence: None)
  Receive Date: 20100731
  Receipt Date: 20080213
  Transmission Date: 20110219
  Serious: Yes (Death, Other)
  Sender: FDA-Public Use
  Company Number: US-PFIZER INC-2007087990

PATIENT
  Sex: Male
  Weight: 64 kg

DRUGS (8)
  1. CAMPTOSAR [Suspect]
     Indication: OESOPHAGEAL CARCINOMA
     Route: 042
     Dates: start: 20071015, end: 20071015
  2. ATENOLOL [Concomitant]
     Route: 048
  3. ROXICET [Concomitant]
     Indication: PAIN
     Dosage: 5/325 5CC,EVERY FOUR HOURS AS NEEDED
  4. LOVASTATIN [Concomitant]
  5. MULTI-VITAMINS [Concomitant]
  6. COMPAZINE [Concomitant]
     Indication: NAUSEA
     Dosage: EVERY FOUR HOURS AS NEEDED
  7. ZOFRAN [Concomitant]
     Dosage: AS NEEDED
  8. REMERON [Concomitant]
     Dosage: AT BEDTIME

REACTIONS (8)
  - ABDOMINAL PAIN [None]
  - ANAEMIA [None]
  - COUGH [None]
  - DISEASE PROGRESSION [None]
  - FLATULENCE [None]
  - LEUKOPENIA [None]
  - OESOPHAGEAL CARCINOMA [None]
  - THROMBOCYTOPENIA [None]
